FAERS Safety Report 11109810 (Version 4)
Quarter: 2015Q4

REPORT INFORMATION
  Report Type: Spontaneous
  Country: US (occurrence: US)
  Receive Date: 20150513
  Receipt Date: 20151123
  Transmission Date: 20160304
  Serious: Yes (Hospitalization, Disabling, Other)
  Sender: FDA-Public Use
  Company Number: US-009507513-1505USA004569

PATIENT
  Sex: Female
  Weight: 53.97 kg

DRUGS (4)
  1. FOSAMAX [Suspect]
     Active Substance: ALENDRONATE SODIUM
     Indication: OSTEOPENIA
  2. ALENDRONATE SODIUM. [Suspect]
     Active Substance: ALENDRONATE SODIUM
     Indication: OSTEOPOROSIS
     Dosage: 70 MG, UNK
     Route: 048
     Dates: start: 20081216, end: 2010
  3. ALENDRONATE SODIUM. [Suspect]
     Active Substance: ALENDRONATE SODIUM
     Indication: OSTEOPOROSIS
     Dosage: 70 MG, UNK
     Route: 048
     Dates: start: 20100731, end: 20120316
  4. FOSAMAX [Suspect]
     Active Substance: ALENDRONATE SODIUM
     Indication: OSTEOPOROSIS
     Dosage: 70 MG, UNK
     Route: 048
     Dates: start: 2003, end: 2008

REACTIONS (18)
  - Arthralgia [Recovered/Resolved]
  - Hypercholesterolaemia [Unknown]
  - Hypoxia [Unknown]
  - Femur fracture [Recovered/Resolved with Sequelae]
  - Thyroid disorder [Unknown]
  - Anal fissure [Unknown]
  - Vitamin D deficiency [Unknown]
  - Uterine prolapse [Unknown]
  - Pollakiuria [Unknown]
  - Atelectasis [Unknown]
  - Emphysema [Unknown]
  - Chronic obstructive pulmonary disease [Unknown]
  - Pulmonary hypertension [Unknown]
  - Low turnover osteopathy [Not Recovered/Not Resolved]
  - Arthritis [Unknown]
  - Fall [Unknown]
  - Medical device complication [Recovered/Resolved]
  - Foot fracture [Unknown]

NARRATIVE: CASE EVENT DATE: 2003
